FAERS Safety Report 8281260-6 (Version None)
Quarter: 2012Q2

REPORT INFORMATION
  Report Type: 
  Country: None (occurrence: None)
  Receive Date: 20120413
  Receipt Date: 20120331
  Transmission Date: 20120825
  Serious: Yes (Other)
  Sender: FDA-Public Use
  Company Number: US-PAR PHARMACEUTICAL, INC-2012SCPR004301

PATIENT

DRUGS (4)
  1. ZOLPIDEM TARTRATE [Suspect]
     Indication: INSOMNIA
     Dosage: 1 PILL, SINGLE
     Route: 065
  2. RISPERIDONE [Concomitant]
     Indication: PRODUCT USED FOR UNKNOWN INDICATION
     Dosage: 3.5 MG, HS
     Route: 065
  3. PAROXETINE [Suspect]
     Indication: PRODUCT USED FOR UNKNOWN INDICATION
     Dosage: 30 MG, HS
     Route: 065
  4. ANTIPSYCHOTICS [Concomitant]
     Indication: PRODUCT USED FOR UNKNOWN INDICATION
     Dosage: UNK, UNKNOWN
     Route: 065

REACTIONS (8)
  - SELF ESTEEM INFLATED [None]
  - FEELING DRUNK [None]
  - INITIAL INSOMNIA [None]
  - MUSCULAR WEAKNESS [None]
  - VISION BLURRED [None]
  - GRANDIOSITY [None]
  - DRUG INTERACTION [None]
  - MANIA [None]
